FAERS Safety Report 6105742-8 (Version None)
Quarter: 2009Q1

REPORT INFORMATION
  Report Type: 
  Country: None (occurrence: None)
  Receive Date: 20090306
  Receipt Date: 20090222
  Transmission Date: 20090719
  Serious: Yes (Hospitalization)
  Sender: FDA-Public Use
  Company Number: JP-JNJFOC-20090300046

PATIENT
  Sex: Female

DRUGS (6)
  1. S-4661 [Suspect]
     Indication: SEPSIS
     Route: 041
  2. FENTANYL [Suspect]
     Indication: ANALGESIA
     Route: 065
  3. LANDSEN [Suspect]
     Indication: HYPOAESTHESIA
     Route: 065
  4. SOLDEM 3A [Concomitant]
     Route: 042
  5. SOLDEM 3A [Concomitant]
     Indication: FLUID REPLACEMENT
     Route: 042
  6. HALOPERIDOL [Concomitant]

REACTIONS (1)
  - DEPRESSED LEVEL OF CONSCIOUSNESS [None]
